FAERS Safety Report 17144247 (Version 1)
Quarter: 2019Q4

REPORT INFORMATION
  Report Type: Spontaneous
  Country: US (occurrence: US)
  Receive Date: 20191209
  Receipt Date: 20191209
  Transmission Date: 20200122
  Serious: Yes (Hospitalization)
  Sender: FDA-Public Use
  Company Number: None

PATIENT
  Age: 58 Year
  Sex: Male

DRUGS (5)
  1. WARFARIN [Suspect]
     Active Substance: WARFARIN
     Indication: PULMONARY EMBOLISM
  2. ENOXAPARIN (GENERIC) [Suspect]
     Active Substance: ENOXAPARIN
     Indication: ANTICOAGULANT THERAPY
  3. ENOXAPARIN (GENERIC) [Suspect]
     Active Substance: ENOXAPARIN
     Indication: DEEP VEIN THROMBOSIS
     Route: 058
     Dates: start: 20191110, end: 20191120
  4. ENOXAPARIN (GENERIC) [Suspect]
     Active Substance: ENOXAPARIN
     Indication: PULMONARY EMBOLISM
  5. WARFARIN [Suspect]
     Active Substance: WARFARIN
     Indication: DEEP VEIN THROMBOSIS
     Dates: start: 20150303

REACTIONS (9)
  - Colon adenoma [None]
  - Haematocrit decreased [None]
  - Anticoagulation drug level below therapeutic [None]
  - Eosinophilia [None]
  - Cryptitis [None]
  - Melaena [None]
  - Large intestine polyp [None]
  - Colonic abscess [None]
  - Gastric haemorrhage [None]

NARRATIVE: CASE EVENT DATE: 20191120
